FAERS Safety Report 7534832-8 (Version None)
Quarter: 2011Q2

REPORT INFORMATION
  Report Type: 
  Country: None (occurrence: None)
  Receive Date: 20110609
  Receipt Date: 20080930
  Transmission Date: 20111010
  Serious: Yes (Other)
  Sender: FDA-Public Use
  Company Number: PHHY2008CA23086

PATIENT
  Sex: Female

DRUGS (3)
  1. CLOZAPINE [Suspect]
     Indication: SCHIZOPHRENIA
     Dosage: 100 MG AT MORNING AND 150 MG AT SUPPER TIME
     Route: 048
  2. CLOZAPINE [Suspect]
     Dosage: 100 MG, BID
     Route: 048
  3. SEROQUEL [Concomitant]

REACTIONS (2)
  - HYPOAESTHESIA ORAL [None]
  - HYPOAESTHESIA FACIAL [None]
